FAERS Safety Report 25708131 (Version 1)
Quarter: 2025Q3

REPORT INFORMATION
  Report Type: Spontaneous
  Country: CN (occurrence: CN)
  Receive Date: 20250820
  Receipt Date: 20250820
  Transmission Date: 20251020
  Serious: Yes (Other)
  Sender: BEIGENE
  Company Number: CN-BEIGENE-BGN-2025-013726

PATIENT
  Age: 72 Year
  Weight: 50 kg

DRUGS (24)
  1. TISLELIZUMAB [Suspect]
     Active Substance: TISLELIZUMAB
     Indication: Gastric cancer
  2. TISLELIZUMAB [Suspect]
     Active Substance: TISLELIZUMAB
     Route: 041
  3. TISLELIZUMAB [Suspect]
     Active Substance: TISLELIZUMAB
     Route: 041
  4. TISLELIZUMAB [Suspect]
     Active Substance: TISLELIZUMAB
  5. CAPECITABINE [Suspect]
     Active Substance: CAPECITABINE
     Indication: Gastric cancer
  6. CAPECITABINE [Suspect]
     Active Substance: CAPECITABINE
  7. CAPECITABINE [Suspect]
     Active Substance: CAPECITABINE
     Route: 048
  8. CAPECITABINE [Suspect]
     Active Substance: CAPECITABINE
     Route: 048
  9. CAPECITABINE [Suspect]
     Active Substance: CAPECITABINE
  10. CAPECITABINE [Suspect]
     Active Substance: CAPECITABINE
  11. CAPECITABINE [Suspect]
     Active Substance: CAPECITABINE
     Route: 048
  12. CAPECITABINE [Suspect]
     Active Substance: CAPECITABINE
     Route: 048
  13. OXALIPLATIN [Suspect]
     Active Substance: OXALIPLATIN
     Indication: Gastric cancer
  14. OXALIPLATIN [Suspect]
     Active Substance: OXALIPLATIN
     Route: 041
  15. OXALIPLATIN [Suspect]
     Active Substance: OXALIPLATIN
     Route: 041
  16. OXALIPLATIN [Suspect]
     Active Substance: OXALIPLATIN
  17. SODIUM CHLORIDE [Concomitant]
     Active Substance: SODIUM CHLORIDE
     Indication: Vehicle solution use
  18. SODIUM CHLORIDE [Concomitant]
     Active Substance: SODIUM CHLORIDE
     Route: 041
  19. SODIUM CHLORIDE [Concomitant]
     Active Substance: SODIUM CHLORIDE
     Route: 041
  20. SODIUM CHLORIDE [Concomitant]
     Active Substance: SODIUM CHLORIDE
  21. DEXTROSE [Concomitant]
     Active Substance: DEXTROSE MONOHYDRATE
     Indication: Vehicle solution use
  22. DEXTROSE [Concomitant]
     Active Substance: DEXTROSE MONOHYDRATE
     Route: 041
  23. DEXTROSE [Concomitant]
     Active Substance: DEXTROSE MONOHYDRATE
     Route: 041
  24. DEXTROSE [Concomitant]
     Active Substance: DEXTROSE MONOHYDRATE

REACTIONS (1)
  - Myelosuppression [Recovering/Resolving]
